FAERS Safety Report 6604661-8 (Version None)
Quarter: 2010Q1

REPORT INFORMATION
  Report Type: 
  Country: None (occurrence: None)
  Receive Date: 20100226
  Receipt Date: 20100217
  Transmission Date: 20100710
  Serious: Yes (Death, Other)
  Sender: FDA-Public Use
  Company Number: US-ROCHE-675721

PATIENT
  Sex: Female

DRUGS (10)
  1. TRASTUZUMAB [Suspect]
     Dosage: 154 MG, Q3W
     Route: 042
     Dates: start: 20020807, end: 20021119
  2. TRASTUZUMAB [Suspect]
     Dosage: 154 MG, Q3W
     Route: 042
     Dates: start: 20020807, end: 20021119
  3. MABTHERA [Suspect]
     Indication: NON-HODGKIN'S LYMPHOMA
     Dosage: UNK
     Route: 065
     Dates: start: 20050223
  4. DOCETAXEL [Suspect]
     Dosage: 138 MG, UNKNOWN
     Route: 042
     Dates: start: 20020807, end: 20021119
  5. CARBOPLATIN [Suspect]
     Dosage: 652 MG, Q3W
     Route: 042
     Dates: start: 20020807, end: 20021119
  6. CARBOPLATIN [Suspect]
     Dosage: 652 MG, Q3W
     Route: 042
     Dates: start: 20020807, end: 20021119
  7. ARIMIDEX [Concomitant]
     Indication: DRUG USE FOR UNKNOWN INDICATION
     Dosage: UNK
     Dates: start: 20060201
  8. CYCLOPHOSPHAMIDE [Concomitant]
     Indication: NON-HODGKIN'S LYMPHOMA
     Dosage: UNK
     Dates: start: 20050601
  9. DOXORUBICIN HCL [Concomitant]
     Indication: NON-HODGKIN'S LYMPHOMA
     Dosage: UNK
     Dates: start: 20050601
  10. VINCRISTINE [Concomitant]
     Indication: NON-HODGKIN'S LYMPHOMA
     Dosage: UNK
     Dates: start: 20050601

REACTIONS (2)
  - MYELODYSPLASTIC SYNDROME [None]
  - NON-HODGKIN'S LYMPHOMA [None]
